FAERS Safety Report 10274554 (Version 2)
Quarter: 2014Q3

REPORT INFORMATION
  Report Type: Spontaneous
  Country: US (occurrence: US)
  Receive Date: 20140702
  Receipt Date: 20140822
  Transmission Date: 20150326
  Serious: Yes (Other)
  Sender: FDA-Public Use
  Company Number: US-PFIZER INC-2014175958

PATIENT
  Age: 68 Year
  Sex: Male

DRUGS (9)
  1. SUTENT [Suspect]
     Active Substance: SUNITINIB MALATE
     Indication: RENAL CANCER
     Dosage: 25 MG, CYCLIC (DAILY FOR 4 WEEKS ON, TWO WEEKS OFF)
     Dates: start: 201204, end: 201301
  2. SUCRALFATE. [Concomitant]
     Active Substance: SUCRALFATE
     Dosage: UNK
  3. METROPOLOL [Concomitant]
     Active Substance: METOPROLOL
     Dosage: UNK
  4. AMIODARONE [Concomitant]
     Active Substance: AMIODARONE
     Dosage: UNK
  5. ZOFRAN [Concomitant]
     Active Substance: ONDANSETRON HYDROCHLORIDE
  6. TEMAZEPAM. [Concomitant]
     Active Substance: TEMAZEPAM
     Dosage: UNK
  7. HYDROCODONE [Concomitant]
     Active Substance: HYDROCODONE
     Dosage: UNK
  8. EPOGEN [Concomitant]
     Active Substance: ERYTHROPOIETIN
     Dosage: UNK
  9. NEXIUM [Concomitant]
     Active Substance: ESOMEPRAZOLE MAGNESIUM
     Dosage: UNK

REACTIONS (8)
  - Diarrhoea [Unknown]
  - Renal cancer [Unknown]
  - Disease progression [Unknown]
  - Nausea [Unknown]
  - Epistaxis [Unknown]
  - Ulcer haemorrhage [Unknown]
  - Weight decreased [Unknown]
  - Dysgeusia [Unknown]
